FAERS Safety Report 7658779-1 (Version None)
Quarter: 2011Q3

REPORT INFORMATION
  Report Type: 
  Country: None (occurrence: None)
  Receive Date: 20110805
  Receipt Date: 20110805
  Transmission Date: 20111222
  Serious: Yes (Hospitalization)
  Sender: FDA-Public Use
  Company Number: None

PATIENT
  Age: 59 Year
  Sex: Female
  Weight: 64.41 kg

DRUGS (2)
  1. PRISTIQ [Suspect]
     Indication: DEPRESSION
     Dosage: 50 MG
     Route: 048
     Dates: start: 20110714, end: 20110730
  2. PRISTIQ [Suspect]
     Indication: ANXIETY
     Dosage: 50 MG
     Route: 048
     Dates: start: 20110714, end: 20110730

REACTIONS (5)
  - MYDRIASIS [None]
  - ANXIETY [None]
  - PALPITATIONS [None]
  - CHILLS [None]
  - BLOOD PRESSURE INCREASED [None]
